FAERS Safety Report 7746835-9 (Version None)
Quarter: 2011Q3

REPORT INFORMATION
  Report Type: 
  Country: None (occurrence: None)
  Receive Date: 20110913
  Receipt Date: 20110903
  Transmission Date: 20111222
  Serious: Yes (Hospitalization)
  Sender: FDA-Public Use
  Company Number: US-JNJFOC-20110804707

PATIENT
  Sex: Male
  Weight: 69 kg

DRUGS (7)
  1. PREDNISONE [Concomitant]
     Route: 065
  2. REMICADE [Suspect]
     Route: 042
     Dates: start: 20110903
  3. HYDROCORTISONE [Concomitant]
     Indication: PREMEDICATION
     Route: 065
  4. TYLENOL-500 [Concomitant]
     Indication: PREMEDICATION
     Route: 065
  5. ENTOCORT EC [Concomitant]
     Route: 065
  6. REMICADE [Suspect]
     Indication: CROHN'S DISEASE
     Route: 042
     Dates: start: 20110723
  7. IMURAN [Concomitant]
     Route: 065

REACTIONS (7)
  - URTICARIA [None]
  - CHEST DISCOMFORT [None]
  - DYSPNOEA [None]
  - PRURITUS [None]
  - LOSS OF CONSCIOUSNESS [None]
  - BURNING SENSATION [None]
  - INFUSION RELATED REACTION [None]
